FAERS Safety Report 4952098-X (Version None)
Quarter: 2006Q1

REPORT INFORMATION
  Report Type: 
  Country: None (occurrence: None)
  Receive Date: 20060320
  Receipt Date: 20060308
  Transmission Date: 20060701
  Serious: Yes (Hospitalization)
  Sender: FDA-Public Use
  Company Number: 2006000028

PATIENT
  Age: 28 Year
  Sex: Female

DRUGS (5)
  1. DEPO-PROVERA [Suspect]
     Indication: CONTRACEPTION
     Dosage: 150 MG (150 MG, SINGLE  INJECTION), INTRAMUSCULAR
     Route: 030
     Dates: start: 20051202, end: 20051202
  2. DEPO-PROVERA [Suspect]
     Indication: MENORRHAGIA
     Dosage: 150 MG (150 MG, SINGLE  INJECTION), INTRAMUSCULAR
     Route: 030
     Dates: start: 20051202, end: 20051202
  3. METHERGRIN (METHYLERGOMETRINE MALEATE) [Concomitant]
  4. PROPRANOLOL [Concomitant]
  5. DIAZEPAM [Concomitant]

REACTIONS (18)
  - ABDOMINAL PAIN [None]
  - ABORTION SPONTANEOUS [None]
  - ACNE [None]
  - APPLICATION SITE PAIN [None]
  - BREAST PAIN [None]
  - DRUG EXPOSURE DURING PREGNANCY [None]
  - DYSPHONIA [None]
  - HEADACHE [None]
  - HELMINTHIC INFECTION [None]
  - MENORRHAGIA [None]
  - MENSTRUATION IRREGULAR [None]
  - POLLAKIURIA [None]
  - PREGNANCY WITH INJECTABLE CONTRACEPTIVE [None]
  - SALIVARY HYPERSECRETION [None]
  - SELF-MEDICATION [None]
  - SOMNOLENCE [None]
  - UTERINE ENLARGEMENT [None]
  - VAGINAL HAEMORRHAGE [None]
